FAERS Safety Report 13407276 (Version 3)
Quarter: 2017Q2

REPORT INFORMATION
  Report Type: Spontaneous
  Country: ES (occurrence: ES)
  Receive Date: 20170405
  Receipt Date: 20170622
  Transmission Date: 20170830
  Serious: Yes (Life-Threatening, Hospitalization)
  Sender: FDA-Public Use
  Company Number: ES-BAYER-2017-037888

PATIENT
  Age: 25 Year
  Sex: Female
  Weight: 65 kg

DRUGS (1)
  1. JAYDESS [Suspect]
     Active Substance: LEVONORGESTREL
     Indication: CONTRACEPTION
     Dosage: 14 MCG/24HR, CONT
     Route: 015
     Dates: start: 20160115, end: 20170213

REACTIONS (11)
  - Abdominal pain lower [Recovered/Resolved]
  - Cardiovascular disorder [Unknown]
  - Drug ineffective [Unknown]
  - Ectopic pregnancy with contraceptive device [Recovered/Resolved]
  - Abortion of ectopic pregnancy [Recovered/Resolved]
  - Dysmenorrhoea [None]
  - Amenorrhoea [Unknown]
  - Internal haemorrhage [Unknown]
  - Pyrexia [None]
  - Procedural pain [None]
  - Gestational trophoblastic tumour [Unknown]

NARRATIVE: CASE EVENT DATE: 201603
